FAERS Safety Report 7772610-5 (Version None)
Quarter: 2011Q3

REPORT INFORMATION
  Report Type: 
  Country: None (occurrence: None)
  Receive Date: 20110922
  Receipt Date: 20110726
  Transmission Date: 20111222
  Serious: No
  Sender: FDA-Public Use
  Company Number: US-ASTRAZENECA-2011SE44727

PATIENT
  Sex: Male
  Weight: 93 kg

DRUGS (3)
  1. SEROQUEL XR [Suspect]
     Indication: BIPOLAR DISORDER
     Route: 048
  2. SEROQUEL XR [Suspect]
     Indication: SLEEP DISORDER
     Route: 048
  3. BUSPIRON [Concomitant]

REACTIONS (3)
  - DRUG DOSE OMISSION [None]
  - INSOMNIA [None]
  - TREATMENT NONCOMPLIANCE [None]
